FAERS Safety Report 23944179 (Version 1)
Quarter: 2024Q2

REPORT INFORMATION
  Report Type: Spontaneous
  Country: US (occurrence: US)
  Receive Date: 20240606
  Receipt Date: 20240606
  Transmission Date: 20240716
  Serious: Yes (Life-Threatening, Hospitalization, Other)
  Sender: FDA-Public Use
  Company Number: US-ALKEM LABORATORIES LIMITED-US-ALKEM-2024-11681

PATIENT
  Age: 63 Year
  Sex: Female

DRUGS (1)
  1. IBUPROFEN [Suspect]
     Active Substance: IBUPROFEN
     Indication: Ulcer
     Dosage: 800 MILLIGRAM, QD, TABLET, 10-12 TABLETS/DAY FOR THE PAST 10 MONTHS
     Route: 065

REACTIONS (3)
  - Hypokalaemia [Recovered/Resolved]
  - Renal tubular acidosis [Unknown]
  - Overdose [Unknown]
